FAERS Safety Report 23039272 (Version 1)
Quarter: 2023Q4

REPORT INFORMATION
  Report Type: Spontaneous
  Country: ES (occurrence: ES)
  Receive Date: 20231006
  Receipt Date: 20231006
  Transmission Date: 20240109
  Serious: Yes (Congenital Anomaly, Other)
  Sender: FDA-Public Use
  Company Number: None

PATIENT
  Age: 1 Day
  Sex: Female
  Weight: 2.76 kg

DRUGS (3)
  1. ENOXAPARIN SODIUM [Suspect]
     Active Substance: ENOXAPARIN SODIUM
     Indication: Antiphospholipid syndrome
     Dosage: UNK (30 PRE-FILLED SYRINGES OF 0.4 ML)
     Route: 064
     Dates: start: 20221128, end: 20230509
  2. INNOHEP [Suspect]
     Active Substance: TINZAPARIN SODIUM
     Indication: Antiphospholipid syndrome
     Dosage: UNK (10 PREFILLED SYRINGES WITH 0.35 ML OF SOLUTION)
     Route: 065
     Dates: start: 20230509, end: 20230916
  3. ASPIRIN [Suspect]
     Active Substance: ASPIRIN
     Indication: Antiphospholipid syndrome
     Dosage: UNK
     Dates: start: 20221128, end: 20230812

REACTIONS (2)
  - Neonatal leukaemia [Unknown]
  - Foetal exposure during pregnancy [Unknown]

NARRATIVE: CASE EVENT DATE: 20230918
